FAERS Safety Report 9332549 (Version 1)
Quarter: 2013Q2

REPORT INFORMATION
  Report Type: Spontaneous
  Country: US (occurrence: US)
  Receive Date: 20130606
  Receipt Date: 20130606
  Transmission Date: 20140414
  Serious: No
  Sender: FDA-Public Use
  Company Number: US-009507513-1306USA000924

PATIENT
  Age: 21 Year
  Sex: Female
  Weight: 63.49 kg

DRUGS (1)
  1. NUVARING [Suspect]
     Indication: CONTRACEPTION
     Dosage: 1 RING FOR 4 WEEKS FOLLOWED BY A NEW RING FOR 4 WEEKS
     Route: 067
     Dates: start: 200805

REACTIONS (3)
  - Vaginal haemorrhage [Unknown]
  - Cervix inflammation [Unknown]
  - Inappropriate schedule of drug administration [Unknown]
